FAERS Safety Report 5123246-6 (Version None)
Quarter: 2006Q4

REPORT INFORMATION
  Report Type: 
  Country: None (occurrence: None)
  Receive Date: 20061009
  Receipt Date: 20060918
  Transmission Date: 20070319
  Serious: Yes (Other)
  Sender: FDA-Public Use
  Company Number: US-GLAXOSMITHKLINE-A0620770A

PATIENT
  Age: 59 Year
  Sex: Female

DRUGS (4)
  1. REQUIP [Suspect]
     Indication: RESTLESS LEGS SYNDROME
     Dosage: 1MG PER DAY
     Route: 048
     Dates: start: 20060503, end: 20060718
  2. LUNESTA [Concomitant]
     Indication: INSOMNIA
     Dosage: 2MG AS REQUIRED
     Route: 048
     Dates: start: 20060213
  3. LEXAPRO [Concomitant]
     Indication: DEPRESSION
     Dosage: 20MG TWICE PER DAY
     Route: 048
     Dates: start: 20060517
  4. TRANXENE [Concomitant]
     Dosage: 3.75MG AS REQUIRED

REACTIONS (2)
  - IMPAIRED DRIVING ABILITY [None]
  - SUDDEN ONSET OF SLEEP [None]
